FAERS Safety Report 14570507 (Version 3)
Quarter: 2018Q2

REPORT INFORMATION
  Report Type: Spontaneous
  Country: IT (occurrence: IT)
  Receive Date: 20180226
  Receipt Date: 20180502
  Transmission Date: 20180711
  Serious: Yes (Hospitalization)
  Sender: FDA-Public Use
  Company Number: IT-ROCHE-2073844

PATIENT
  Age: 95 Year
  Sex: Female
  Weight: 45 kg

DRUGS (1)
  1. TAMIFLU [Suspect]
     Active Substance: OSELTAMIVIR PHOSPHATE
     Indication: PRODUCT USED FOR UNKNOWN INDICATION
     Route: 048
     Dates: start: 20180110, end: 20180115

REACTIONS (5)
  - Erythema multiforme [Recovered/Resolved]
  - Lip erosion [Recovered/Resolved]
  - Dermatitis bullous [Recovered/Resolved]
  - Oral mucosal eruption [Recovered/Resolved]
  - Rash erythematous [Recovered/Resolved]

NARRATIVE: CASE EVENT DATE: 20180115
